FAERS Safety Report 4944888-4 (Version None)
Quarter: 2006Q1

REPORT INFORMATION
  Report Type: 
  Country: None (occurrence: None)
  Receive Date: 20060315
  Receipt Date: 20060310
  Transmission Date: 20060701
  Serious: Yes (Hospitalization, Other)
  Sender: FDA-Public Use
  Company Number: AU-MERCK-0603AUS00075

PATIENT
  Age: 80 Year
  Sex: Female

DRUGS (7)
  1. AMITRIPTYLINE HYDROCHLORIDE [Concomitant]
     Indication: TENSION
     Route: 048
     Dates: start: 20040301
  2. FOSAMAX [Suspect]
     Indication: OSTEOPOROSIS
     Route: 048
     Dates: start: 20040301
  3. [THERAPY UNSPECIFIED] [Concomitant]
     Indication: SLEEP DISORDER
     Route: 065
  4. ATORVASTATIN CALCIUM [Concomitant]
     Indication: BLOOD CHOLESTEROL INCREASED
     Route: 065
  5. ATENOLOL [Concomitant]
     Indication: BLOOD PRESSURE ABNORMAL
     Route: 065
     Dates: start: 19990101
  6. OMEPRAZOLE MAGNESIUM [Concomitant]
     Indication: GASTROOESOPHAGEAL REFLUX DISEASE
     Route: 065
  7. ASPIRIN [Concomitant]
     Route: 065

REACTIONS (6)
  - CATARACT [None]
  - CHOLECYSTECTOMY [None]
  - GENITAL PRURITUS FEMALE [None]
  - PANCREATITIS [None]
  - RASH ERYTHEMATOUS [None]
  - VISION BLURRED [None]
